FAERS Safety Report 10156417 (Version 1)
Quarter: 2014Q2

REPORT INFORMATION
  Report Type: Spontaneous
  Country: US (occurrence: None)
  Receive Date: 20140506
  Receipt Date: 20140506
  Transmission Date: 20141212
  Serious: Yes (Death, Life-Threatening)
  Sender: FDA-Public Use
  Company Number: None

PATIENT
  Age: 59 Year
  Sex: Male
  Weight: 83.92 kg

DRUGS (1)
  1. XELODA [Suspect]
     Indication: COLON CANCER

REACTIONS (6)
  - International normalised ratio increased [None]
  - Activated partial thromboplastin time prolonged [None]
  - Unresponsive to stimuli [None]
  - Drug interaction [None]
  - Cerebral haemorrhage [None]
  - Medication error [None]
